FAERS Safety Report 25743970 (Version 2)
Quarter: 2025Q4

REPORT INFORMATION
  Report Type: Report from Study
  Country: US (occurrence: US)
  Receive Date: 20250831
  Receipt Date: 20251011
  Transmission Date: 20260117
  Serious: Yes (Other)
  Sender: ABBVIE
  Company Number: US-ABBVIE-6436738

PATIENT
  Age: 57 Year
  Sex: Female

DRUGS (2)
  1. SKYRIZI [Suspect]
     Active Substance: RISANKIZUMAB-RZAA
     Indication: Psoriatic arthropathy
     Route: 058
     Dates: start: 20240717
  2. SKYRIZI [Suspect]
     Active Substance: RISANKIZUMAB-RZAA
     Route: 058
     Dates: start: 20250928

REACTIONS (4)
  - Chest discomfort [Recovering/Resolving]
  - Muscle tightness [Recovering/Resolving]
  - Fatigue [Recovering/Resolving]
  - Respiratory symptom [Recovering/Resolving]

NARRATIVE: CASE EVENT DATE: 20250925
